FAERS Safety Report 5434859-6 (Version None)
Quarter: 2007Q3

REPORT INFORMATION
  Report Type: 
  Country: None (occurrence: None)
  Receive Date: 20070831
  Receipt Date: 20070807
  Transmission Date: 20080115
  Serious: No
  Sender: FDA-Public Use
  Company Number: A0668301A

PATIENT
  Age: 34 Year
  Sex: Female

DRUGS (1)
  1. ALLI [Suspect]
     Dates: start: 20070723, end: 20070728

REACTIONS (4)
  - ANXIETY [None]
  - DYSPNOEA [None]
  - HEADACHE [None]
  - NAUSEA [None]
